FAERS Safety Report 25275080 (Version 1)
Quarter: 2025Q2

REPORT INFORMATION
  Report Type: Spontaneous
  Country: IT (occurrence: IT)
  Receive Date: 20250506
  Receipt Date: 20250506
  Transmission Date: 20250717
  Serious: Yes (Other)
  Sender: ELI LILLY AND COMPANY
  Company Number: None

PATIENT
  Age: 77 Year
  Sex: Female
  Weight: 50 kg

DRUGS (9)
  1. CETUXIMAB [Suspect]
     Active Substance: CETUXIMAB
     Indication: Colorectal neoplasm
     Dosage: 500 MG/M2, 2/M (ONCE IN 14 DAYS)
     Route: 042
     Dates: start: 20250416
  2. DEXAMETHASONE [Concomitant]
     Active Substance: DEXAMETHASONE
     Indication: Chemotherapy side effect prophylaxis
     Dosage: 8 MG, 2/M (ONCE IN 14 DAYS)
     Route: 042
     Dates: start: 20250416
  3. ONDANSETRON [Concomitant]
     Active Substance: ONDANSETRON
     Indication: Chemotherapy side effect prophylaxis
     Dosage: 8 MG, 2/M (ONCE IN 14 DAYS)
     Route: 042
     Dates: start: 20250416
  4. PANTOPRAZOLE SODIUM [Concomitant]
     Active Substance: PANTOPRAZOLE SODIUM
     Indication: Gastrooesophageal reflux disease
     Dosage: 20 MG, DAILY
     Route: 048
     Dates: start: 2015
  5. RAMIPRIL [Concomitant]
     Active Substance: RAMIPRIL
     Indication: Hypertension
     Dosage: 5 MG, DAILY
     Route: 048
     Dates: start: 2015
  6. ASPIRIN [Concomitant]
     Active Substance: ASPIRIN
     Indication: Myocardial infarction
     Dosage: 100 MG, DAILY
     Route: 048
     Dates: start: 2015
  7. CHLORPHENIRAMINE MALEATE [Concomitant]
     Active Substance: CHLORPHENIRAMINE MALEATE
     Indication: Chemotherapy side effect prophylaxis
     Dosage: 10 MG, 2/M (ONCE IN 14 DAYS)
     Route: 042
     Dates: start: 20250416
  8. ROSUVASTATINA/EZETIMIBA TEVA [Concomitant]
     Indication: Dyslipidaemia
     Dosage: UNK UNK, DAILY (10MG PLUS 10MG)
     Route: 048
     Dates: start: 2015
  9. BISOPROLOL FUMARATE [Concomitant]
     Active Substance: BISOPROLOL FUMARATE
     Indication: Hypertension
     Dosage: 1.25 MG, DAILY
     Route: 048
     Dates: start: 2015

REACTIONS (3)
  - Back pain [Recovered/Resolved]
  - Hypotension [Recovered/Resolved]
  - Dyspnoea [Recovered/Resolved]

NARRATIVE: CASE EVENT DATE: 20250416
